FAERS Safety Report 5181050-7 (Version None)
Quarter: 2006Q4

REPORT INFORMATION
  Report Type: 
  Country: None (occurrence: None)
  Receive Date: 20061213
  Receipt Date: 20061213
  Transmission Date: 20070319
  Serious: No
  Sender: FDA-Public Use
  Company Number: None

PATIENT
  Sex: Female
  Weight: 45.3597 kg

DRUGS (4)
  1. MIRTAZAPINE [Suspect]
     Indication: MAJOR DEPRESSION
     Dosage: 45 MG QHS PO
     Route: 048
  2. WELLBUTRIN XL [Concomitant]
  3. BUSPAR [Concomitant]
  4. ATIVAN [Concomitant]

REACTIONS (1)
  - DEPRESSION [None]
